FAERS Safety Report 8083355-9 (Version None)
Quarter: 2012Q1

REPORT INFORMATION
  Report Type: 
  Country: None (occurrence: None)
  Receive Date: 20120127
  Receipt Date: 20110114
  Transmission Date: 20120608
  Serious: No
  Sender: FDA-Public Use
  Company Number: US-ABBOTT-11P-163-0697817-00

PATIENT
  Age: 63 Year
  Sex: Male

DRUGS (9)
  1. PREDNISOLONE ACETATE OPHSUST [Concomitant]
     Indication: PRODUCT USED FOR UNKNOWN INDICATION
  2. HUMIRA [Suspect]
     Indication: PSORIATIC ARTHROPATHY
     Dates: start: 20070101
  3. INSULIN HUMULIN [Concomitant]
     Indication: TYPE 2 DIABETES MELLITUS
  4. SYNTHROID [Concomitant]
     Indication: HYPOTHYROIDISM
  5. OTHER EYE MEDICATION [Concomitant]
     Indication: PRODUCT USED FOR UNKNOWN INDICATION
  6. 2 DIFFERENT MEDICATION FOR PROSTATE PROBLEMS [Concomitant]
     Indication: PRODUCT USED FOR UNKNOWN INDICATION
  7. METFFORMIN HYDROCHLORIDE [Concomitant]
     Indication: DIABETES MELLITUS
  8. DORZOLAMIDE [Concomitant]
     Indication: GLAUCOMA
  9. OTHER MEDICATIONS [Concomitant]
     Indication: PRODUCT USED FOR UNKNOWN INDICATION

REACTIONS (1)
  - POLLAKIURIA [None]
